FAERS Safety Report 19413357 (Version 3)
Quarter: 2022Q1

REPORT INFORMATION
  Report Type: Spontaneous
  Country: DE (occurrence: DE)
  Receive Date: 20210614
  Receipt Date: 20220103
  Transmission Date: 20220424
  Serious: Yes (Other)
  Sender: FDA-Public Use
  Company Number: DE-MERCK HEALTHCARE KGAA-9242415

PATIENT
  Age: 67 Year
  Sex: Male

DRUGS (3)
  1. ERBITUX [Suspect]
     Active Substance: CETUXIMAB
     Indication: Laryngeal cancer
     Dosage: UNK UNK, UNKNOWN
     Route: 065
     Dates: start: 201310, end: 201401
  2. DOCETAXEL [Concomitant]
     Active Substance: DOCETAXEL
     Indication: Laryngeal cancer
     Dosage: UNK UNK, UNKNOWN
     Route: 065
     Dates: start: 201310, end: 201401
  3. CISPLATIN [Concomitant]
     Active Substance: CISPLATIN
     Indication: Laryngeal cancer
     Dosage: UNK UNK, UNKNOWN
     Route: 065
     Dates: start: 201310, end: 201401

REACTIONS (2)
  - Febrile neutropenia [Unknown]
  - Pneumonia [Unknown]

NARRATIVE: CASE EVENT DATE: 20130101
